FAERS Safety Report 8277575-8 (Version None)
Quarter: 2012Q2

REPORT INFORMATION
  Report Type: 
  Country: None (occurrence: None)
  Receive Date: 20120412
  Receipt Date: 20120410
  Transmission Date: 20120825
  Serious: Yes (Other)
  Sender: FDA-Public Use
  Company Number: US-PFIZER INC-2012089874

PATIENT
  Sex: Female
  Weight: 71.2 kg

DRUGS (5)
  1. LIPITOR [Concomitant]
     Dosage: 10 MG, UNK
  2. BUFFERIN [Concomitant]
     Dosage: UNK
  3. PREMARIN [Suspect]
     Indication: PREMATURE MENOPAUSE
     Dosage: 1 DF, 1X/DAY
     Route: 048
  4. ATENOLOL [Concomitant]
     Dosage: UNK
  5. LISINOPRIL [Concomitant]
     Dosage: UNK

REACTIONS (3)
  - ANKLE FRACTURE [None]
  - TYPE 2 DIABETES MELLITUS [None]
  - HIP FRACTURE [None]
